FAERS Safety Report 11584564 (Version 3)
Quarter: 2015Q4

REPORT INFORMATION
  Report Type: Spontaneous
  Country: DK (occurrence: DK)
  Receive Date: 20151001
  Receipt Date: 20151015
  Transmission Date: 20160304
  Serious: No
  Sender: FDA-Public Use
  Company Number: DK-SA-2015SA148172

PATIENT
  Age: 28 Year
  Sex: Male
  Weight: 92 kg

DRUGS (3)
  1. BACLOFEN. [Concomitant]
     Active Substance: BACLOFEN
     Indication: MUSCLE SPASMS
     Dosage: 20 MG AT NIGHT (+ 20-30)
     Dates: start: 20150401
  2. GABAPENTIN. [Concomitant]
     Active Substance: GABAPENTIN
     Dosage: DOSE: 300MG + 300MG + 600MG + 0MG
     Dates: start: 20150326
  3. AUBAGIO [Suspect]
     Active Substance: TERIFLUNOMIDE
     Route: 065
     Dates: start: 20141217

REACTIONS (1)
  - Weight decreased [Unknown]
